FAERS Safety Report 6023667-3 (Version None)
Quarter: 2008Q4

REPORT INFORMATION
  Report Type: 
  Country: None (occurrence: None)
  Receive Date: 20081229
  Receipt Date: 20081229
  Transmission Date: 20090506
  Serious: No
  Sender: FDA-Public Use
  Company Number: None

PATIENT
  Age: 69 Year
  Sex: Male
  Weight: 63.5036 kg

DRUGS (2)
  1. PROVENTIL-HFA [Suspect]
     Indication: ASTHMA
     Dosage: 2 PUFFS 3 TIMES A DAY PO
     Route: 048
     Dates: start: 20080703, end: 20081228
  2. PROVENTIL-HFA [Suspect]
     Indication: LUNG NEOPLASM MALIGNANT
     Dosage: 2 PUFFS 3 TIMES A DAY PO
     Route: 048
     Dates: start: 20080703, end: 20081228

REACTIONS (6)
  - DRUG EFFECT DECREASED [None]
  - DYSPNOEA [None]
  - ECONOMIC PROBLEM [None]
  - FRUSTRATION [None]
  - PRODUCT QUALITY ISSUE [None]
  - QUALITY OF LIFE DECREASED [None]
